FAERS Safety Report 9234292 (Version 1)
Quarter: 2013Q2

REPORT INFORMATION
  Report Type: Report from Study
  Country: BE (occurrence: BE)
  Receive Date: 20130416
  Receipt Date: 20130416
  Transmission Date: 20140414
  Serious: Yes (Death, Hospitalization)
  Sender: FDA-Public Use
  Company Number: BE-ROCHE-1179794

PATIENT
  Age: 82 Year
  Sex: Female
  Weight: 77 kg

DRUGS (13)
  1. METHOXY POLYETHYLENE GLYCOL-EPOETIN BETA [Suspect]
     Indication: NEPHROGENIC ANAEMIA
     Dosage: DATE OF LAST DOSE PRIOR TO SAE: 19/DEC/2012
     Route: 042
     Dates: start: 20081130
  2. ALFACALCIDOL [Concomitant]
     Route: 065
     Dates: start: 20110203, end: 20130408
  3. ACID. ACETYLSALICYL. [Concomitant]
     Route: 065
     Dates: start: 20070802, end: 20130408
  4. TRAMADOL HYDROCHLORIDE [Concomitant]
     Dosage: AS NEEDED
     Route: 065
     Dates: start: 20120611, end: 20130408
  5. TRAMADOL HYDROCHLORIDE [Concomitant]
     Route: 065
  6. TRAMADOL HYDROCHLORIDE [Concomitant]
     Route: 065
  7. MOLSIDOMINE [Concomitant]
     Route: 065
     Dates: start: 20061010, end: 20130408
  8. PARACETAMOL [Concomitant]
     Route: 065
     Dates: start: 20120418, end: 20130408
  9. CALCIFEROL [Concomitant]
     Dosage: DOSE: 25000 E
     Route: 065
     Dates: start: 20120425, end: 20130408
  10. GABAPENTIN [Concomitant]
     Route: 065
     Dates: start: 20121001, end: 20130408
  11. OMEPRAZOLE [Concomitant]
     Route: 065
     Dates: start: 20121130
  12. LORAZEPAM [Concomitant]
     Route: 065
     Dates: start: 20091022, end: 20130408
  13. VANCOMYCIN HYDROCHLORIDE [Concomitant]
     Route: 065
     Dates: start: 20110924, end: 20130408

REACTIONS (2)
  - Sudden death [Fatal]
  - Hypervolaemia [Recovered/Resolved]
